FAERS Safety Report 25330719 (Version 1)
Quarter: 2025Q2

REPORT INFORMATION
  Report Type: Spontaneous
  Country: US (occurrence: None)
  Receive Date: 20250516
  Receipt Date: 20250516
  Transmission Date: 20250716
  Serious: Yes (Other)
  Sender: FDA-CTU
  Company Number: None

PATIENT
  Age: 17 Year
  Sex: Female
  Weight: 67 kg

DRUGS (2)
  1. MIFEPRISTONE [Suspect]
     Active Substance: MIFEPRISTONE
     Indication: Unintended pregnancy
     Dates: start: 20250420
  2. MISOPROSTOL [Suspect]
     Active Substance: MISOPROSTOL
     Indication: Unintended pregnancy
     Dates: start: 20250420

REACTIONS (3)
  - Vaginal haemorrhage [None]
  - Treatment failure [None]
  - Unintended pregnancy [None]

NARRATIVE: CASE EVENT DATE: 20250427
